FAERS Safety Report 10266077 (Version 1)
Quarter: 2014Q2

REPORT INFORMATION
  Report Type: Report from Study
  Country: US (occurrence: US)
  Receive Date: 20140627
  Receipt Date: 20140627
  Transmission Date: 20141212
  Serious: Yes (Hospitalization, Other)
  Sender: FDA-Public Use
  Company Number: US-ABBVIE-14P-163-1248629-00

PATIENT
  Age: 66 Year
  Sex: Female
  Weight: 67.19 kg

DRUGS (14)
  1. HUMIRA [Suspect]
     Indication: PSORIATIC ARTHROPATHY
  2. ELAVIL [Concomitant]
     Indication: PRODUCT USED FOR UNKNOWN INDICATION
  3. ATENOLOL [Concomitant]
     Indication: PRODUCT USED FOR UNKNOWN INDICATION
  4. GABAPENTIN [Concomitant]
     Indication: PRODUCT USED FOR UNKNOWN INDICATION
  5. VAGIFEM [Concomitant]
     Indication: PRODUCT USED FOR UNKNOWN INDICATION
  6. CITROPAN [Concomitant]
     Indication: PRODUCT USED FOR UNKNOWN INDICATION
  7. MYRBETRIQ [Concomitant]
     Indication: PRODUCT USED FOR UNKNOWN INDICATION
  8. FEM HRT [Concomitant]
     Indication: PRODUCT USED FOR UNKNOWN INDICATION
  9. ZOCOR [Concomitant]
     Indication: BLOOD CHOLESTEROL INCREASED
  10. CLARITIN [Concomitant]
     Indication: HYPERSENSITIVITY
  11. ASACOL [Concomitant]
     Indication: GASTRIC DISORDER
  12. XANAX [Concomitant]
     Indication: PRODUCT USED FOR UNKNOWN INDICATION
  13. CITALOPRAM [Concomitant]
     Indication: ANTIDEPRESSANT THERAPY
  14. OMEPRAZOLE [Concomitant]
     Indication: PRODUCT USED FOR UNKNOWN INDICATION

REACTIONS (3)
  - Fall [Recovered/Resolved]
  - Pelvic fracture [Recovering/Resolving]
  - Eyelid operation [Recovering/Resolving]
